FAERS Safety Report 7284548-0 (Version None)
Quarter: 2011Q1

REPORT INFORMATION
  Report Type: 
  Country: None (occurrence: None)
  Receive Date: 20110209
  Receipt Date: 20101203
  Transmission Date: 20110831
  Serious: Yes (Death, Hospitalization)
  Sender: FDA-Public Use
  Company Number: IT-BAYER-201014070GPV

PATIENT
  Sex: Male

DRUGS (1)
  1. AVELOX [Suspect]
     Indication: BRONCHITIS
     Route: 048
     Dates: start: 20100103, end: 20100115

REACTIONS (6)
  - PRURITUS [None]
  - HEPATITIS FULMINANT [None]
  - PULMONARY EMBOLISM [None]
  - JAUNDICE [None]
  - FAECES PALE [None]
  - NAUSEA [None]
